FAERS Safety Report 12977590 (Version 1)
Quarter: 2016Q4

REPORT INFORMATION
  Report Type: Spontaneous
  Country: US (occurrence: US)
  Receive Date: 20161125
  Receipt Date: 20161125
  Transmission Date: 20170207
  Serious: Yes (Other)
  Sender: FDA-Public Use
  Company Number: None

PATIENT
  Age: 50 Year
  Sex: Female
  Weight: 76.5 kg

DRUGS (1)
  1. MONISTAT 3 [Suspect]
     Active Substance: MICONAZOLE NITRATE
     Indication: VULVOVAGINAL MYCOTIC INFECTION
     Dosage: ?          QUANTITY:3 APPLICATOR;?
     Route: 067
     Dates: start: 20161124, end: 20161124

REACTIONS (3)
  - Vulvovaginal burning sensation [None]
  - Vulvovaginal pruritus [None]
  - Product substitution issue [None]

NARRATIVE: CASE EVENT DATE: 20161124
